FAERS Safety Report 6788325-6 (Version None)
Quarter: 2010Q2

REPORT INFORMATION
  Report Type: 
  Country: None (occurrence: None)
  Receive Date: 20100623
  Receipt Date: 20080307
  Transmission Date: 20101027
  Serious: No
  Sender: FDA-Public Use
  Company Number: US-PFIZER INC-2008015042

PATIENT
  Sex: Female
  Weight: 53.52 kg

DRUGS (6)
  1. XALATAN [Suspect]
     Indication: GLAUCOMA
     Route: 047
  2. VITAMINS [Concomitant]
  3. BENICAR [Concomitant]
  4. ACETYLSALICYLIC ACID [Concomitant]
  5. GLUCOSAMINE [Concomitant]
  6. AZOPT [Concomitant]
     Route: 047

REACTIONS (3)
  - BODY HEIGHT DECREASED [None]
  - DRY EYE [None]
  - EYE IRRITATION [None]
